FAERS Safety Report 8712641 (Version 2)
Quarter: 2012Q4

REPORT INFORMATION
  Report Type: 
  Country: IR (occurrence: IR)
  Receive Date: 20120808
  Receipt Date: 20120906
  Transmission Date: 20130627
  Serious: Yes (Hospitalization, Other)
  Sender: FDA-Public Use
  Company Number: IR-JNJFOC-20120800892

PATIENT
  Age: 46 Year
  Sex: Male

DRUGS (3)
  1. CLADRIBINE [Suspect]
     Indication: HAIRY CELL LEUKAEMIA
     Dosage: continous intravenous infusion over 7 days
     Route: 042
  2. LITAK [Suspect]
     Indication: HAIRY CELL LEUKAEMIA
     Dosage: continous intravenous infusion over 7 days
     Route: 042
  3. GRANULOCYTE-MACROPHAGE COLONY-STIMULATING FACTOR HUMAN (NON-GLYCOSYLATED) [Suspect]
     Indication: HAIRY CELL LEUKAEMIA
     Route: 065

REACTIONS (5)
  - Disseminated tuberculosis [Recovered/Resolved]
  - Meningitis tuberculous [Unknown]
  - Pneumonia [Unknown]
  - Loss of consciousness [Unknown]
  - Aphasia [Not Recovered/Not Resolved]
